FAERS Safety Report 5129948-X (Version None)
Quarter: 2006Q4

REPORT INFORMATION
  Report Type: 
  Country: None (occurrence: None)
  Receive Date: 20061013
  Receipt Date: 20060921
  Transmission Date: 20070319
  Serious: Yes (Death)
  Sender: FDA-Public Use
  Company Number: JP200609005021

PATIENT
  Age: 76 Year
  Sex: Male

DRUGS (2)
  1. GEMZAR [Suspect]
     Indication: NON-SMALL CELL LUNG CANCER
     Dosage: 1200 MG, D1, D8, INTRAVENOUS
     Route: 042
     Dates: start: 20051221
  2. NAVELBINE [Concomitant]

REACTIONS (1)
  - DEATH [None]
